FAERS Safety Report 6107448-8 (Version None)
Quarter: 2009Q1

REPORT INFORMATION
  Report Type: 
  Country: None (occurrence: None)
  Receive Date: 20090309
  Receipt Date: 20090302
  Transmission Date: 20090719
  Serious: Yes (Death, Other)
  Sender: FDA-Public Use
  Company Number: CA-WYE-G03244709

PATIENT
  Sex: Female

DRUGS (2)
  1. TIGECYCLINE [Suspect]
     Indication: STAPHYLOCOCCAL INFECTION
  2. TIGECYCLINE [Suspect]
     Indication: HAEMOPHILUS INFECTION

REACTIONS (3)
  - DEATH [None]
  - HAEMOPHILUS INFECTION [None]
  - STAPHYLOCOCCAL INFECTION [None]
